FAERS Safety Report 7272868-5 (Version None)
Quarter: 2011Q1

REPORT INFORMATION
  Report Type: 
  Country: None (occurrence: None)
  Receive Date: 20110126
  Receipt Date: 20110113
  Transmission Date: 20110831
  Serious: Yes (Other)
  Sender: FDA-Public Use
  Company Number: 021611

PATIENT
  Age: 29 Year
  Sex: Female

DRUGS (4)
  1. CIMZIA [Suspect]
     Indication: COLITIS ULCERATIVE
     Dosage: 400 MG 1X/4 WEEKS,
     Dates: start: 20100426, end: 20100622
  2. CIMZIA [Suspect]
     Indication: SPONDYLITIS
     Dosage: 400 MG 1X/4 WEEKS,
     Dates: start: 20100426, end: 20100622
  3. ANTI-D IMMUNOGLOBULIN [Concomitant]
  4. SPIRICORT [Concomitant]

REACTIONS (6)
  - OLIGOHYDRAMNIOS [None]
  - WEIGHT INCREASED [None]
  - OFF LABEL USE [None]
  - CAESAREAN SECTION [None]
  - DRUG EXPOSURE DURING PREGNANCY [None]
  - COLITIS [None]
